FAERS Safety Report 15749246 (Version 3)
Quarter: 2019Q4

REPORT INFORMATION
  Report Type: Report from Study
  Country: US (occurrence: US)
  Receive Date: 20181221
  Receipt Date: 20191212
  Transmission Date: 20200122
  Serious: No
  Sender: FDA-Public Use
  Company Number: PHEH2018US053226

PATIENT
  Sex: Female

DRUGS (2)
  1. ILARIS [Suspect]
     Active Substance: CANAKINUMAB
     Indication: AUTOINFLAMMATORY DISEASE
     Dosage: 75 MG, EVERY 8 WEEKS
     Route: 058
     Dates: start: 20170216
  2. ILARIS [Suspect]
     Active Substance: CANAKINUMAB
     Indication: CRYOPYRIN ASSOCIATED PERIODIC SYNDROME
     Dosage: 75 MG, EVERY 6 WEEKS
     Route: 058

REACTIONS (4)
  - Pruritus [Unknown]
  - Insomnia [Unknown]
  - Malaise [Unknown]
  - Ill-defined disorder [Unknown]
